FAERS Safety Report 4881415-4 (Version None)
Quarter: 2006Q1

REPORT INFORMATION
  Report Type: 
  Country: None (occurrence: None)
  Receive Date: 20060116
  Receipt Date: 20060103
  Transmission Date: 20060701
  Serious: Yes (Other)
  Sender: FDA-Public Use
  Company Number: US-ABBOTT-06P-163-0321199-00

PATIENT
  Age: 19 Year
  Sex: Female
  Weight: 50 kg

DRUGS (14)
  1. CYCLOSPORINE [Suspect]
     Indication: IMMUNOSUPPRESSION
     Route: 048
  2. CYCLOSPORINE [Suspect]
     Route: 048
  3. CYCLOSPORINE [Suspect]
     Route: 048
  4. PHENYTOIN SODIUM CAP [Interacting]
     Indication: GRAND MAL CONVULSION
     Route: 048
  5. PHENYTOIN SODIUM CAP [Interacting]
  6. PHENYTOIN SODIUM CAP [Interacting]
  7. ANTITHYMOCYTE IMMUNOGLOBULIN [Concomitant]
     Indication: IMMUNOSUPPRESSION
     Route: 042
  8. METHYLPREDNISOLONE [Concomitant]
     Indication: IMMUNOSUPPRESSION
     Dosage: THEN A TAPERING SCHEDULE
     Route: 042
  9. MYCOPHENOLATE MOFETIL [Concomitant]
     Indication: IMMUNOSUPPRESSION
  10. PREDNISONE [Concomitant]
     Indication: IMMUNOSUPPRESSION
     Route: 048
  11. TICARCILLIN-CLAVULANIC ACID [Concomitant]
     Indication: PNEUMONIA
     Route: 042
  12. METRONIDAZOLE [Concomitant]
     Indication: PNEUMONIA
     Route: 042
  13. CASPOFUNGIN [Concomitant]
     Indication: FUNGAEMIA
     Dosage: ONE DOSE
     Route: 042
  14. CASPOFUNGIN [Concomitant]

REACTIONS (2)
  - DRUG INTERACTION [None]
  - KIDNEY TRANSPLANT REJECTION [None]
